FAERS Safety Report 14895616 (Version 1)
Quarter: 2018Q2

REPORT INFORMATION
  Report Type: Spontaneous
  Country: US (occurrence: US)
  Receive Date: 20180427
  Receipt Date: 20180427
  Transmission Date: 20180711
  Serious: Yes (Hospitalization)
  Sender: FDA-Public Use
  Company Number: None

PATIENT
  Age: 50 Year
  Sex: Female
  Weight: 71.6 kg

DRUGS (2)
  1. CARBOPLATIN 10MG/ML 60 ML VIAL TEVA [Suspect]
     Active Substance: CARBOPLATIN
     Route: 042
     Dates: start: 20180315, end: 20180419
  2. CARBOPLATIN 10MG/ML 60 ML VIAL TEVA [Suspect]
     Active Substance: CARBOPLATIN
     Route: 042
     Dates: start: 20171206, end: 20180123

REACTIONS (3)
  - Rash [None]
  - Erythema [None]
  - Pruritus [None]

NARRATIVE: CASE EVENT DATE: 20180419
